FAERS Safety Report 10420693 (Version 1)
Quarter: 2014Q3

REPORT INFORMATION
  Report Type: Spontaneous
  Country: US (occurrence: None)
  Receive Date: 20140829
  Receipt Date: 20140829
  Transmission Date: 20150326
  Serious: No
  Sender: FDA-Public Use
  Company Number: None

PATIENT
  Age: 38 Year
  Sex: Female
  Weight: 67.59 kg

DRUGS (2)
  1. METHYLPHENIDATE ER [Suspect]
     Active Substance: METHYLPHENIDATE
     Indication: NARCOLEPSY
     Dosage: 1 AT FIRST THEN INCRESED TO 2 TWICE DAILY TAKEN BY MOUTH
     Route: 048
     Dates: start: 20140426, end: 20140616
  2. METHYLPHENIDATE ER [Suspect]
     Active Substance: METHYLPHENIDATE
     Indication: CATAPLEXY
     Dosage: 1 AT FIRST THEN INCRESED TO 2 TWICE DAILY TAKEN BY MOUTH
     Route: 048
     Dates: start: 20140426, end: 20140616

REACTIONS (3)
  - Product substitution issue [None]
  - Somnolence [None]
  - Product quality issue [None]

NARRATIVE: CASE EVENT DATE: 20140416
